FAERS Safety Report 10952281 (Version 1)
Quarter: 2015Q1

REPORT INFORMATION
  Report Type: Spontaneous
  Country: US (occurrence: None)
  Receive Date: 20150323
  Receipt Date: 20150323
  Transmission Date: 20150721
  Serious: No
  Sender: FDA-Public Use
  Company Number: VIT-2015-00145

PATIENT
  Age: 53 Year
  Sex: Female
  Weight: 50.35 kg

DRUGS (9)
  1. VELPHORO [Suspect]
     Active Substance: FERRIC OXYHYDROXIDE
     Indication: HYPERPHOSPHATAEMIA
     Route: 048
     Dates: start: 2014
  2. PREDNISONE. [Concomitant]
     Active Substance: PREDNISONE
  3. CELEBREX [Concomitant]
     Active Substance: CELECOXIB
  4. DIGOXIN. [Concomitant]
     Active Substance: DIGOXIN
  5. AMBIEN [Concomitant]
     Active Substance: ZOLPIDEM TARTRATE
  6. NEXIUM [Concomitant]
     Active Substance: ESOMEPRAZOLE MAGNESIUM
  7. ATENOLOL. [Concomitant]
     Active Substance: ATENOLOL
  8. PRORENAL MULTIVITAMINS (LIMAPROST, PRORENAL MULTIVITAMINS) [Concomitant]
  9. TUMS [Concomitant]
     Active Substance: CALCIUM CARBONATE

REACTIONS (4)
  - Treatment noncompliance [None]
  - Product taste abnormal [None]
  - Abdominal discomfort [None]
  - Product quality issue [None]

NARRATIVE: CASE EVENT DATE: 20150119
